FAERS Safety Report 9640331 (Version 2)
Quarter: 2013Q4

REPORT INFORMATION
  Report Type: Spontaneous
  Country: US (occurrence: US)
  Receive Date: 20131023
  Receipt Date: 20131029
  Transmission Date: 20140711
  Serious: Yes (Other)
  Sender: FDA-Public Use
  Company Number: US-SA-2013SA104785

PATIENT
  Sex: Female
  Weight: 55.33 kg

DRUGS (18)
  1. PLAVIX [Suspect]
     Indication: THROMBOSIS
     Route: 048
  2. COUMADIN [Suspect]
     Indication: ARTERIAL STENOSIS
     Route: 065
  3. COUMADIN [Suspect]
     Indication: ARTERIAL STENOSIS
     Route: 065
  4. LESCOL [Concomitant]
     Route: 065
  5. IMDUR [Concomitant]
  6. ISOSORBIDE [Concomitant]
  7. PROTONIX [Concomitant]
     Route: 065
  8. LISINOPRIL [Concomitant]
     Route: 065
  9. NORVASC [Concomitant]
     Route: 065
  10. METOPROLOL [Concomitant]
     Route: 065
  11. LEXAPRO [Concomitant]
     Route: 065
  12. XANAX [Concomitant]
     Route: 065
  13. METHIMAZOLE [Concomitant]
     Route: 065
  14. TOPROL XL [Concomitant]
     Route: 065
  15. HYOSCYAMINE [Concomitant]
     Route: 065
  16. IMDUR - SLOW RELEASE [Concomitant]
     Route: 065
  17. NITROSTAT [Concomitant]
     Indication: CHEST PAIN
     Dosage: ONCE THIS YEAR FOR CHEST PAIN
     Route: 065
  18. TYLENOL [Concomitant]
     Route: 065

REACTIONS (9)
  - Thyroid adenoma [Unknown]
  - Irritable bowel syndrome [Unknown]
  - Intervertebral disc degeneration [Unknown]
  - Limb injury [Not Recovered/Not Resolved]
  - Pain in extremity [Not Recovered/Not Resolved]
  - Peripheral arterial occlusive disease [Unknown]
  - Contusion [Recovered/Resolved]
  - Haemorrhage [Unknown]
  - Wrong technique in drug usage process [Unknown]
